FAERS Safety Report 4315453-7 (Version None)
Quarter: 2004Q1

REPORT INFORMATION
  Report Type: 
  Country: None (occurrence: None)
  Receive Date: 20040310
  Receipt Date: 20040310
  Transmission Date: 20041129
  Serious: Yes (Hospitalization)
  Sender: FDA-Public Use
  Company Number: None

PATIENT
  Age: 8 Year
  Sex: Female
  Weight: 18.5 kg

DRUGS (4)
  1. ARA-C [Suspect]
     Indication: ACUTE LYMPHOCYTIC LEUKAEMIA
     Dosage: SEE IMAGE
  2. 6T6 [Suspect]
     Indication: ACUTE LYMPHOCYTIC LEUKAEMIA
     Dosage: SEE IMAGE
  3. METHOTREXATE [Suspect]
     Dosage: SEE IMAGE
  4. CPM [Suspect]
     Indication: ACUTE LYMPHOCYTIC LEUKAEMIA
     Dosage: SEE IMAGE

REACTIONS (7)
  - ABNORMAL BEHAVIOUR [None]
  - DISINHIBITION [None]
  - ENCEPHALITIS [None]
  - HEADACHE [None]
  - HYPOAESTHESIA [None]
  - INAPPROPRIATE AFFECT [None]
  - NEUROLOGIC NEGLECT SYNDROME [None]
